FAERS Safety Report 14898632 (Version 1)
Quarter: 2018Q2

REPORT INFORMATION
  Report Type: Spontaneous
  Country: US (occurrence: US)
  Receive Date: 20180515
  Receipt Date: 20180515
  Transmission Date: 20180711
  Serious: Yes (Other)
  Sender: FDA-Public Use
  Company Number: US-OTSUKA-2018_012240

PATIENT
  Sex: Male

DRUGS (1)
  1. DACOGEN [Suspect]
     Active Substance: DECITABINE
     Indication: ACUTE MYELOID LEUKAEMIA
     Dosage: 39 MG, UNK (DAYS 1-5 EVERY 28 DAYS)
     Route: 042
     Dates: start: 20180226

REACTIONS (5)
  - Infusion site infection [Recovered/Resolved]
  - Treatment noncompliance [Unknown]
  - Infusion site inflammation [Unknown]
  - Neutrophil count abnormal [Not Recovered/Not Resolved]
  - Drug dose omission [Unknown]

NARRATIVE: CASE EVENT DATE: 20180430
